FAERS Safety Report 16611436 (Version 1)
Quarter: 2019Q3

REPORT INFORMATION
  Report Type: Spontaneous
  Country: US (occurrence: US)
  Receive Date: 20190607
  Receipt Date: 20190607
  Transmission Date: 20191004
  Serious: Yes (Other)
  Sender: FDA-Public Use
  Company Number: None

PATIENT
  Age: 74 Year
  Sex: Female
  Weight: 87.54 kg

DRUGS (10)
  1. LOSARTAN POTASSIUM. [Concomitant]
     Active Substance: LOSARTAN POTASSIUM
  2. INDAPAMIDE. [Concomitant]
     Active Substance: INDAPAMIDE
  3. COQ10 [Concomitant]
     Active Substance: UBIDECARENONE
  4. LUCENTIS [Suspect]
     Active Substance: RANIBIZUMAB
     Indication: MACULAR OEDEMA
  5. AMLODIPINE [Concomitant]
     Active Substance: AMLODIPINE BESYLATE
  6. VITAMIN D [Concomitant]
     Active Substance: VITAMIN D NOS
  7. FERROUS SULFATE. [Concomitant]
     Active Substance: FERROUS SULFATE
  8. JANUMET [Concomitant]
     Active Substance: METFORMIN HYDROCHLORIDE\SITAGLIPTIN PHOSPHATE
  9. IRON SUPPLEMENT [Concomitant]
     Active Substance: IRON
  10. GLIPIZIDE. [Concomitant]
     Active Substance: GLIPIZIDE

REACTIONS (4)
  - Eye pain [None]
  - Injection site pain [None]
  - Visual acuity reduced [None]
  - Headache [None]

NARRATIVE: CASE EVENT DATE: 20190403
